FAERS Safety Report 5529560-4 (Version None)
Quarter: 2007Q4

REPORT INFORMATION
  Report Type: 
  Country: None (occurrence: None)
  Receive Date: 20071129
  Receipt Date: 20071120
  Transmission Date: 20080405
  Serious: Yes (Death, Hospitalization, Other)
  Sender: FDA-Public Use
  Company Number: US-ELI_LILLY_AND_COMPANY-US200711004868

PATIENT
  Sex: Male

DRUGS (10)
  1. BYETTA [Suspect]
     Dosage: 10 UG, DAILY (1/D)
     Route: 058
     Dates: start: 20070324, end: 20070411
  2. BYETTA [Suspect]
     Dosage: 5 U, DAILY (1/D)
     Route: 058
     Dates: start: 20070411, end: 20070412
  3. LANTUS [Concomitant]
     Dosage: UNK, UNKNOWN
  4. GLIPIZIDE [Concomitant]
     Dosage: UNK, UNKNOWN
     Route: 048
  5. ALTACE [Concomitant]
     Dosage: 5 MG, UNKNOWN
     Route: 048
  6. LANOXIN [Concomitant]
     Dosage: UNK, UNKNOWN
     Route: 048
  7. MAGNESIUM SULFATE [Concomitant]
     Dosage: UNK, UNKNOWN
     Route: 048
  8. POTASSIUM CHLORIDE [Concomitant]
     Dosage: UNK, UNKNOWN
     Route: 048
  9. DEMADEX [Concomitant]
     Dosage: UNK, UNKNOWN
     Route: 048
  10. COREG [Concomitant]
     Dosage: UNK, UNKNOWN
     Route: 048

REACTIONS (5)
  - ABDOMINAL PAIN [None]
  - BLOOD GLUCOSE DECREASED [None]
  - CARDIOMYOPATHY [None]
  - DECREASED APPETITE [None]
  - NAUSEA [None]
